FAERS Safety Report 5813183-3 (Version None)
Quarter: 2008Q3

REPORT INFORMATION
  Report Type: 
  Country: None (occurrence: None)
  Receive Date: 20080717
  Receipt Date: 20080326
  Transmission Date: 20090109
  Serious: No
  Sender: FDA-Public Use
  Company Number: A0717559A

PATIENT
  Age: 26 Year

DRUGS (1)
  1. NICORETTE (MINT) [Suspect]

REACTIONS (12)
  - DROOLING [None]
  - FACIAL PAIN [None]
  - GINGIVAL BLISTER [None]
  - GINGIVAL PAIN [None]
  - GINGIVAL SWELLING [None]
  - INSOMNIA [None]
  - OEDEMA MOUTH [None]
  - OROPHARYNGEAL BLISTERING [None]
  - OROPHARYNGEAL PAIN [None]
  - PHARYNGEAL OEDEMA [None]
  - SWELLING FACE [None]
  - TONSILLAR DISORDER [None]
